FAERS Safety Report 8553134-4 (Version None)
Quarter: 2012Q3

REPORT INFORMATION
  Report Type: 
  Country: None (occurrence: None)
  Receive Date: 20120731
  Receipt Date: 20120719
  Transmission Date: 20120928
  Serious: Yes (Other)
  Sender: FDA-Public Use
  Company Number: AU-SANOFI-AVENTIS-2012SA051115

PATIENT
  Age: 66 Year
  Sex: Female

DRUGS (2)
  1. ASPIRIN [Concomitant]
     Dosage: LOW DOSE ENTERIC COATED
  2. ARAVA [Suspect]
     Indication: RHEUMATOID ARTHRITIS
     Route: 065

REACTIONS (4)
  - LARGE INTESTINAL HAEMORRHAGE [None]
  - GASTRIC ULCER [None]
  - GASTRIC HAEMORRHAGE [None]
  - HAEMOGLOBIN DECREASED [None]
